FAERS Safety Report 20578902 (Version 1)
Quarter: 2022Q1

REPORT INFORMATION
  Report Type: Spontaneous
  Country: US (occurrence: None)
  Receive Date: 20220310
  Receipt Date: 20220310
  Transmission Date: 20220423
  Serious: Yes (Death, Hospitalization)
  Sender: FDA-Public Use
  Company Number: None

PATIENT
  Age: 69 Year
  Sex: Male

DRUGS (1)
  1. APIXABAN [Suspect]
     Active Substance: APIXABAN
     Indication: Atrial fibrillation
     Dosage: FREQUENCY : TWICE A DAY;?
     Route: 048
     Dates: start: 20200819, end: 20201202

REACTIONS (8)
  - Blood loss anaemia [None]
  - Haematuria [None]
  - Therapy interrupted [None]
  - Ureterolithiasis [None]
  - Hydroureter [None]
  - Asthenia [None]
  - Dyspnoea [None]
  - Gastric haemorrhage [None]

NARRATIVE: CASE EVENT DATE: 20201202
